FAERS Safety Report 4930528-7 (Version None)
Quarter: 2006Q1

REPORT INFORMATION
  Report Type: 
  Country: None (occurrence: None)
  Receive Date: 20060302
  Receipt Date: 20050824
  Transmission Date: 20060701
  Serious: Yes (Hospitalization, Other)
  Sender: FDA-Public Use
  Company Number: US-MERCK-0508USA04108

PATIENT
  Age: 49 Year
  Sex: Female

DRUGS (1)
  1. VIOXX [Suspect]
     Route: 048
     Dates: start: 19990101, end: 20040101

REACTIONS (5)
  - ARTHROPATHY [None]
  - CARPAL TUNNEL SYNDROME [None]
  - CEREBROVASCULAR ACCIDENT [None]
  - HOT FLUSH [None]
  - HYPOTHYROIDISM [None]
